FAERS Safety Report 5501782-8 (Version None)
Quarter: 2007Q4

REPORT INFORMATION
  Report Type: 
  Country: None (occurrence: None)
  Receive Date: 20071030
  Receipt Date: 20071025
  Transmission Date: 20080405
  Serious: Yes (Death, Hospitalization)
  Sender: FDA-Public Use
  Company Number: PHBS2007IT17852

PATIENT
  Age: 49 Year
  Sex: Female

DRUGS (2)
  1. TOLEP [Suspect]
     Indication: CONVULSION
     Dosage: 2 DF/DAY
     Route: 048
     Dates: start: 20070824, end: 20070905
  2. GARDENALE [Suspect]
     Indication: CONVULSION
     Dosage: 1 DF/DAY
     Route: 048
     Dates: start: 20070905, end: 20070925

REACTIONS (4)
  - CARDIOPULMONARY FAILURE [None]
  - RASH MORBILLIFORM [None]
  - STEVENS-JOHNSON SYNDROME [None]
  - TOXIC EPIDERMAL NECROLYSIS [None]
